FAERS Safety Report 10386323 (Version 3)
Quarter: 2014Q4

REPORT INFORMATION
  Report Type: Report from Study
  Country: US (occurrence: US)
  Receive Date: 20140815
  Receipt Date: 20141014
  Transmission Date: 20150528
  Serious: Yes (Death, Other)
  Sender: FDA-Public Use
  Company Number: US-BEH-2014044426

PATIENT
  Sex: Female
  Weight: .44 kg

DRUGS (2)
  1. CYTOGAM [Suspect]
     Active Substance: HUMAN CYTOMEGALOVIRUS IMMUNE GLOBULIN
     Route: 064
     Dates: start: 20140626
  2. ALBUMINAR-5 [Suspect]
     Active Substance: ALBUMIN (HUMAN)
     Route: 064
     Dates: start: 20140626

REACTIONS (2)
  - Foetal exposure during pregnancy [Unknown]
  - Premature baby [Fatal]

NARRATIVE: CASE EVENT DATE: 20140626
